FAERS Safety Report 22152755 (Version 2)
Quarter: 2024Q2

REPORT INFORMATION
  Report Type: Spontaneous
  Country: AU (occurrence: None)
  Receive Date: 20230329
  Receipt Date: 20240524
  Transmission Date: 20240716
  Serious: Yes (Other)
  Sender: FDA-Public Use
  Company Number: 2023A067195

PATIENT
  Age: 29220 Day
  Sex: Male

DRUGS (11)
  1. DURVALUMAB [Suspect]
     Active Substance: DURVALUMAB
  2. CYCLOPHOSPHAMIDE [Suspect]
     Active Substance: CYCLOPHOSPHAMIDE
  3. BRUKINSA [Suspect]
     Active Substance: ZANUBRUTINIB
  4. POLATUZUMAB VEDOTIN [Suspect]
     Active Substance: POLATUZUMAB VEDOTIN
  5. ATEZOLIZUMAB [Suspect]
     Active Substance: ATEZOLIZUMAB
  6. AVELUMAB [Suspect]
     Active Substance: AVELUMAB
  7. BENDAMUSTINE HYDROCHLORIDE [Suspect]
     Active Substance: BENDAMUSTINE HYDROCHLORIDE
  8. DOXORUBICIN HYDROCHLORIDE [Suspect]
     Active Substance: DOXORUBICIN HYDROCHLORIDE
  9. PREDNISOLONE [Suspect]
     Active Substance: PREDNISOLONE
  10. RITUXIMAB [Suspect]
     Active Substance: RITUXIMAB
  11. VINCRISTINE SULFATE [Suspect]
     Active Substance: VINCRISTINE SULFATE

REACTIONS (3)
  - Lymphoma transformation [Unknown]
  - Ankylosing spondylitis [Unknown]
  - Condition aggravated [Unknown]
